FAERS Safety Report 18960673 (Version 1)
Quarter: 2021Q1

REPORT INFORMATION
  Report Type: Spontaneous
  Country: US (occurrence: US)
  Receive Date: 20210302
  Receipt Date: 20210302
  Transmission Date: 20210420
  Serious: No
  Sender: FDA-Public Use
  Company Number: US-NOVOPROD-730325

PATIENT
  Sex: Male

DRUGS (1)
  1. SAXENDA [Suspect]
     Active Substance: LIRAGLUTIDE
     Indication: OBESITY
     Dosage: 0.6 MG, QD
     Route: 058

REACTIONS (6)
  - Decreased appetite [Recovering/Resolving]
  - Intentional product use issue [Unknown]
  - Constipation [Unknown]
  - Dyspepsia [Recovering/Resolving]
  - Nausea [Recovered/Resolved]
  - Off label use [Not Recovered/Not Resolved]
